FAERS Safety Report 11245443 (Version 1)
Quarter: 2015Q3

REPORT INFORMATION
  Report Type: Spontaneous
  Country: FR (occurrence: FR)
  Receive Date: 20150707
  Receipt Date: 20150707
  Transmission Date: 20151125
  Serious: Yes (Death)
  Sender: FDA-Public Use
  Company Number: FR-BAYER-2015-371623

PATIENT
  Age: 59 Year
  Sex: Male

DRUGS (10)
  1. SYMBICORT [Concomitant]
     Active Substance: BUDESONIDE\FORMOTEROL FUMARATE DIHYDRATE
  2. METFORMINE [Concomitant]
     Active Substance: METFORMIN HYDROCHLORIDE
  3. PROPANOLOL [Concomitant]
     Active Substance: PROPRANOLOL HYDROCHLORIDE
  4. ASPEGIC [Concomitant]
     Active Substance: ASPIRIN DL-LYSINE
  5. THERALENE [Concomitant]
     Active Substance: TRIMEPRAZINE
  6. MONTELUKAST [Concomitant]
     Active Substance: MONTELUKAST SODIUM
  7. BRICANYL [Concomitant]
     Active Substance: TERBUTALINE SULFATE
  8. ULTRAVIST [Suspect]
     Active Substance: IOPROMIDE
     Dosage: 100 ML, ONCE
     Route: 048
     Dates: end: 20150528
  9. PYOSTACINE [Concomitant]
     Active Substance: PRISTINAMYCIN
     Dosage: 2 DF, BID
     Route: 048
     Dates: start: 20150602, end: 20150605
  10. INEXIUM [Concomitant]
     Active Substance: ESOMEPRAZOLE

REACTIONS (1)
  - Acute kidney injury [Fatal]

NARRATIVE: CASE EVENT DATE: 20150606
